FAERS Safety Report 5773230-4 (Version None)
Quarter: 2008Q2

REPORT INFORMATION
  Report Type: 
  Country: None (occurrence: None)
  Receive Date: 20080616
  Receipt Date: 20080606
  Transmission Date: 20081010
  Serious: Yes (Other)
  Sender: FDA-Public Use
  Company Number: GB-TEVA-172577ISR

PATIENT
  Age: 11 Year
  Sex: Male

DRUGS (5)
  1. METHOTREXATE [Suspect]
     Indication: JUVENILE ARTHRITIS
     Route: 048
     Dates: start: 20060904
  2. METHOTREXATE [Suspect]
     Route: 058
     Dates: start: 20060307
  3. METHOTREXATE [Suspect]
     Route: 058
     Dates: start: 20070322
  4. METHOTREXATE [Suspect]
     Route: 058
     Dates: start: 20051123
  5. METHOTREXATE [Suspect]
     Route: 058
     Dates: start: 20060125

REACTIONS (3)
  - AMNESIA [None]
  - DISTURBANCE IN ATTENTION [None]
  - MEMORY IMPAIRMENT [None]
